FAERS Safety Report 9232620 (Version 1)
Quarter: 2013Q2

REPORT INFORMATION
  Report Type: Spontaneous
  Country: US (occurrence: None)
  Receive Date: 20130415
  Receipt Date: 20130415
  Transmission Date: 20140414
  Serious: Yes (Other)
  Sender: FDA-Public Use
  Company Number: None

PATIENT
  Age: 38 Year
  Sex: Female
  Weight: 24.08 kg

DRUGS (2)
  1. TOPAMAX [Suspect]
     Indication: ENCEPHALOPATHY
     Dosage: 1 DPSE NID PO
     Route: 048
     Dates: start: 200308
  2. TOPAMAX [Suspect]
     Indication: EPILEPSY
     Dosage: 1 DPSE NID PO
     Route: 048
     Dates: start: 200308

REACTIONS (2)
  - Convulsion [None]
  - Product substitution issue [None]
